FAERS Safety Report 10177040 (Version 1)
Quarter: 2014Q2

REPORT INFORMATION
  Report Type: Spontaneous
  Country: DE (occurrence: DE)
  Receive Date: 20140516
  Receipt Date: 20140516
  Transmission Date: 20141212
  Serious: Yes (Congenital Anomaly, Other)
  Sender: FDA-Public Use
  Company Number: GXKR2014DE001895

PATIENT
  Sex: 0

DRUGS (3)
  1. VENLAFAXINE [Suspect]
     Indication: DEPRESSION
     Dosage: 150 MG, UNK
     Route: 064
     Dates: start: 20121115, end: 20130809
  2. FOLSAEURE [Concomitant]
     Indication: PROPHYLAXIS OF NEURAL TUBE DEFECT
     Route: 064
  3. L-THYROXIN [Concomitant]
     Indication: HYPOTHYROIDISM
     Route: 064
     Dates: start: 20121115, end: 20130809

REACTIONS (9)
  - Myoclonus [Recovered/Resolved]
  - Agitation neonatal [Recovered/Resolved]
  - Neonatal respiratory distress syndrome [Recovered/Resolved]
  - Developmental hip dysplasia [Unknown]
  - Atrial septal defect [Unknown]
  - Congenital mitral valve incompetence [Recovered/Resolved]
  - Congenital tricuspid valve incompetence [Recovered/Resolved]
  - Right ventricular hypertrophy [Recovering/Resolving]
  - Patent ductus arteriosus [Recovered/Resolved]
